FAERS Safety Report 13869078 (Version 4)
Quarter: 2018Q1

REPORT INFORMATION
  Report Type: Spontaneous
  Country: US (occurrence: US)
  Receive Date: 20170815
  Receipt Date: 20180321
  Transmission Date: 20180508
  Serious: Yes (Death, Other)
  Sender: FDA-Public Use
  Company Number: US-009507513-1708USA006112

PATIENT
  Sex: Female
  Weight: 126.53 kg

DRUGS (3)
  1. NUVARING [Suspect]
     Active Substance: ETHINYL ESTRADIOL\ETONOGESTREL
     Dosage: 1 DF, 3 WEEK IN, 1 WEEK RING FREE
     Route: 067
     Dates: start: 201501, end: 201608
  2. NUVARING [Suspect]
     Active Substance: ETHINYL ESTRADIOL\ETONOGESTREL
     Dosage: 1 DF, 3 WEEK IN, 1 WEEK RING FREE
     Route: 067
     Dates: start: 2016, end: 201608
  3. NUVARING [Suspect]
     Active Substance: ETHINYL ESTRADIOL\ETONOGESTREL
     Indication: CONTRACEPTION
     Dosage: 1 DF, 3 WEEK IN, 1 WEEK RING FREE
     Route: 067
     Dates: start: 201501, end: 201608

REACTIONS (5)
  - Loss of consciousness [Fatal]
  - Shock [Fatal]
  - Cardiomegaly [Fatal]
  - Pulmonary embolism [Fatal]
  - Obesity [Fatal]

NARRATIVE: CASE EVENT DATE: 20160819
